FAERS Safety Report 20525504 (Version 2)
Quarter: 2022Q3

REPORT INFORMATION
  Report Type: Report from Study
  Country: FR (occurrence: FR)
  Receive Date: 20220228
  Receipt Date: 20220728
  Transmission Date: 20221027
  Serious: Yes (Hospitalization)
  Sender: FDA-Public Use
  Company Number: FR-SERVIER-S22001882

PATIENT

DRUGS (9)
  1. PEGASPARGASE [Suspect]
     Active Substance: PEGASPARGASE
     Indication: Acute lymphocytic leukaemia
     Dosage: 3380 IU, D12
     Route: 042
     Dates: start: 20211228, end: 20211228
  2. DEXAMETHASONE [Suspect]
     Active Substance: DEXAMETHASONE
     Indication: Acute lymphocytic leukaemia
     Dosage: 13.5 MG, D8 TO D28
     Route: 048
     Dates: start: 20211224
  3. VINCRISTINE [Suspect]
     Active Substance: VINCRISTINE
     Indication: Acute lymphocytic leukaemia
     Dosage: 2 MG, D8, D15, D22
     Route: 042
     Dates: start: 20211224
  4. DAUNORUBICIN [Suspect]
     Active Substance: DAUNORUBICIN
     Indication: Acute lymphocytic leukaemia
     Dosage: 40 MG, D8, D15, D22
     Route: 042
     Dates: start: 20211224
  5. METHOTREXATE [Suspect]
     Active Substance: METHOTREXATE
     Indication: Acute lymphocytic leukaemia
     Dosage: 15 MG, D1, D13, D24
     Route: 037
     Dates: start: 20211225
  6. PREDNISOLONE [Suspect]
     Active Substance: PREDNISOLONE
     Indication: Acute lymphocytic leukaemia
     Dosage: 85 MG, D1 TO D7
     Route: 048
     Dates: start: 20211217, end: 20211223
  7. POLYETHYLENE GLYCOLS [Concomitant]
     Active Substance: POLYETHYLENE GLYCOLS
     Indication: Constipation prophylaxis
     Dosage: 10 G
     Route: 048
     Dates: start: 20211223
  8. PHLOROGLUCINOL [Concomitant]
     Active Substance: PHLOROGLUCINOL
     Indication: Abdominal pain
     Dosage: 160 MG
     Route: 048
     Dates: start: 20211223
  9. ACETAMINOPHEN [Concomitant]
     Active Substance: ACETAMINOPHEN
     Indication: Pain
     Dosage: 3 G
     Route: 048
     Dates: start: 20211223

REACTIONS (2)
  - Aplasia [Recovered/Resolved]
  - Abdominal pain [Recovered/Resolved]

NARRATIVE: CASE EVENT DATE: 20220106
